FAERS Safety Report 9918849 (Version 1)
Quarter: 2014Q1

REPORT INFORMATION
  Report Type: Spontaneous
  Country: ES (occurrence: ES)
  Receive Date: 20140224
  Receipt Date: 20140224
  Transmission Date: 20141002
  Serious: Yes (Hospitalization, Other)
  Sender: FDA-Public Use
  Company Number: CHPA2014ES002768

PATIENT
  Age: 4 Year
  Sex: Female

DRUGS (1)
  1. IBUPROFEN [Suspect]
     Indication: PYREXIA

REACTIONS (4)
  - Haematemesis [Recovered/Resolved]
  - Gastritis erosive [Recovered/Resolved]
  - Drug administered to patient of inappropriate age [Unknown]
  - Incorrect dose administered [Unknown]
